FAERS Safety Report 5261810-4 (Version None)
Quarter: 2007Q1

REPORT INFORMATION
  Report Type: 
  Country: None (occurrence: None)
  Receive Date: 20070310
  Receipt Date: 20070228
  Transmission Date: 20070707
  Serious: Yes (Hospitalization)
  Sender: FDA-Public Use
  Company Number: 2006UW22431

PATIENT
  Sex: Female
  Weight: 127.3 kg

DRUGS (2)
  1. SEROQUEL [Suspect]
     Indication: MENTAL DISORDER
     Route: 048
     Dates: start: 19990101, end: 20060801
  2. ZYPREXA [Concomitant]

REACTIONS (4)
  - DIABETES MELLITUS [None]
  - EYE DISORDER [None]
  - ILL-DEFINED DISORDER [None]
  - NERVOUSNESS [None]
